FAERS Safety Report 7055175-5 (Version None)
Quarter: 2010Q4

REPORT INFORMATION
  Report Type: 
  Country: None (occurrence: None)
  Receive Date: 20101021
  Receipt Date: 20101015
  Transmission Date: 20110411
  Serious: Yes (Death, Other)
  Sender: FDA-Public Use
  Company Number: PHFR2010GB02457

PATIENT
  Sex: Female

DRUGS (8)
  1. CLOZARIL [Suspect]
     Indication: SCHIZOAFFECTIVE DISORDER
     Dosage: UNK
     Route: 048
     Dates: start: 19991207
  2. CLOZARIL [Suspect]
     Dosage: 600 MG, UNK
  3. HYOSCINE HBR HYT [Concomitant]
     Dosage: 300 MG, UNK
     Route: 048
  4. VALPROATE SODIUM [Concomitant]
     Dosage: 1200 MG, UNK
     Route: 048
  5. ALENDRONIC ACID [Concomitant]
     Dosage: 70 MG, QW
     Route: 048
  6. DIAZEPAM [Concomitant]
     Dosage: 2 MG, UNK
     Route: 048
  7. OMEPRAZOLE [Concomitant]
     Dosage: 20 MG, UNK
     Route: 048
  8. PEPTAC [Concomitant]
     Dosage: 10 ML, UNK
     Route: 048

REACTIONS (3)
  - ANAEMIA [None]
  - HAEMORRHOIDS [None]
  - LUNG NEOPLASM MALIGNANT [None]
